FAERS Safety Report 6235004-X (Version None)
Quarter: 2009Q2

REPORT INFORMATION
  Report Type: 
  Country: None (occurrence: None)
  Receive Date: 20090617
  Receipt Date: 20071003
  Transmission Date: 20091009
  Serious: No
  Sender: FDA-Public Use
  Company Number: 268129

PATIENT
  Age: 47 Year
  Sex: Male

DRUGS (3)
  1. LEVEMIR [Suspect]
     Indication: DIABETES MELLITUS
     Dosage: 80 LU, BID, SUBCUTANEOUS
     Route: 058
     Dates: start: 20060101
  2. NOVOLOG [Concomitant]
  3. NOVOPEN 3 (INSULIN DELIVERY DEVICE) [Concomitant]

REACTIONS (2)
  - INJECTION SITE HAEMATOMA [None]
  - INJECTION SITE PAIN [None]
